FAERS Safety Report 22188583 (Version 1)
Quarter: 2023Q2

REPORT INFORMATION
  Report Type: Spontaneous
  Country: HK (occurrence: HK)
  Receive Date: 20230409
  Receipt Date: 20230409
  Transmission Date: 20230722
  Serious: Yes (Hospitalization)
  Sender: FDA-Public Use
  Company Number: HK-STRIDES ARCOLAB LIMITED-2023SP004766

PATIENT
  Age: 78 Year
  Sex: Male

DRUGS (7)
  1. AMPICILLIN TRIHYDRATE [Suspect]
     Active Substance: AMPICILLIN TRIHYDRATE
     Indication: Drug hypersensitivity
     Dosage: UNK
     Route: 065
  2. AMPICILLIN TRIHYDRATE [Suspect]
     Active Substance: AMPICILLIN TRIHYDRATE
     Dosage: 20 MG/ML
     Route: 065
  3. ROCURONIUM [Suspect]
     Active Substance: ROCURONIUM BROMIDE
     Indication: Product used for unknown indication
     Dosage: UNK
     Route: 065
  4. AMOXICILLIN [Suspect]
     Active Substance: AMOXICILLIN
     Indication: Drug hypersensitivity
     Dosage: 20 MG/ML
     Route: 065
  5. PENICILLOYL-POLYLYSINE [Suspect]
     Active Substance: PENICILLOYL-POLYLYSINE
     Indication: Drug hypersensitivity
     Dosage: 0.04 MG/ML
     Route: 065
  6. PENICILLIN V [Suspect]
     Active Substance: PENICILLIN V
     Indication: Drug hypersensitivity
     Dosage: 0.5 MG/ML
     Route: 065
  7. PENICILLIN G [Suspect]
     Active Substance: PENICILLIN G
     Indication: Drug hypersensitivity
     Dosage: 6 MG/ML
     Route: 065

REACTIONS (8)
  - Bronchospasm [Unknown]
  - Hypotension [Recovered/Resolved]
  - Rash [Recovered/Resolved]
  - Drug hypersensitivity [Recovered/Resolved]
  - Skin disorder [Recovered/Resolved]
  - Pruritus [Recovered/Resolved]
  - Urticaria [Recovered/Resolved]
  - Off label use [Unknown]
